FAERS Safety Report 19144323 (Version 1)
Quarter: 2021Q2

REPORT INFORMATION
  Report Type: Spontaneous
  Country: CN (occurrence: CN)
  Receive Date: 20210416
  Receipt Date: 20210416
  Transmission Date: 20210717
  Serious: Yes (Hospitalization)
  Sender: FDA-Public Use
  Company Number: CN-SUN PHARMACEUTICAL INDUSTRIES LTD-2021R1-290831

PATIENT
  Age: 49 Year
  Sex: Male

DRUGS (2)
  1. ASPIRIN. [Suspect]
     Active Substance: ASPIRIN
     Indication: ANEURYSM
     Dosage: 100 MILLIGRAM, DAILY
     Route: 065
  2. CLOPIDOGREL [Suspect]
     Active Substance: CLOPIDOGREL BISULFATE
     Indication: ANEURYSM
     Dosage: 75 MILLIGRAM, DAILY
     Route: 065

REACTIONS (4)
  - Eyelid oedema [Unknown]
  - Epistaxis [Unknown]
  - Nasal congestion [Unknown]
  - Conjunctival hyperaemia [Unknown]
